FAERS Safety Report 21233701 (Version 1)
Quarter: 2022Q3

REPORT INFORMATION
  Report Type: Spontaneous
  Country: US (occurrence: None)
  Receive Date: 20220819
  Receipt Date: 20220819
  Transmission Date: 20221026
  Serious: Yes (Hospitalization)
  Sender: FDA-Public Use
  Company Number: None

PATIENT
  Sex: Female

DRUGS (5)
  1. CIMZIA [Suspect]
     Active Substance: CERTOLIZUMAB PEGOL
     Indication: Rheumatoid arthritis
     Dosage: OTHER QUANTITY : 6 X 200 MG/ML;?FREQUENCY : AS DIRECTED; INJECT 400 MG UNDER THE SKIN (SUBCUTANEOUS
     Route: 058
     Dates: start: 20220728, end: 202208
  2. CIMZIA [Suspect]
     Active Substance: CERTOLIZUMAB PEGOL
     Dosage: FREQUENCY : AS DIRECTED;?
     Route: 058
  3. RINVOQ [Concomitant]
     Active Substance: UPADACITINIB
  4. TYMLOS [Concomitant]
     Active Substance: ABALOPARATIDE
  5. VITAMIN D [Concomitant]
     Active Substance: VITAMIN D NOS

REACTIONS (3)
  - Adverse drug reaction [None]
  - Dyspnoea [None]
  - Asthenia [None]
